FAERS Safety Report 5214955-9 (Version None)
Quarter: 2006Q4

REPORT INFORMATION
  Report Type: 
  Country: None (occurrence: None)
  Receive Date: 20061108
  Receipt Date: 20060731
  Transmission Date: 20070319
  Serious: Yes (Other)
  Sender: FDA-Public Use
  Company Number: US200608000165

PATIENT
  Age: 53 Year
  Sex: Male

DRUGS (2)
  1. PROZAC [Suspect]
     Indication: DEPRESSION
  2. TIMOLOL MALEATE [Concomitant]

REACTIONS (3)
  - ANORGASMIA [None]
  - ERECTILE DYSFUNCTION [None]
  - SUICIDAL BEHAVIOUR [None]
